FAERS Safety Report 23850805 (Version 1)
Quarter: 2024Q2

REPORT INFORMATION
  Report Type: Spontaneous
  Country: US (occurrence: US)
  Receive Date: 20240514
  Receipt Date: 20240514
  Transmission Date: 20240716
  Serious: No
  Sender: FDA-Public Use
  Company Number: US-HALEON-2174219

PATIENT
  Sex: Female

DRUGS (1)
  1. ADVIL [Suspect]
     Active Substance: IBUPROFEN
     Indication: Shoulder fracture
     Dosage: EXPDATE:202202

REACTIONS (2)
  - Expired product administered [Recovering/Resolving]
  - Product storage error [Unknown]
